FAERS Safety Report 4883496-0 (Version None)
Quarter: 2006Q1

REPORT INFORMATION
  Report Type: 
  Country: None (occurrence: None)
  Receive Date: 20060118
  Receipt Date: 20050128
  Transmission Date: 20060701
  Serious: No
  Sender: FDA-Public Use
  Company Number: MK200501-0248-1

PATIENT
  Age: 48 Year
  Sex: Male

DRUGS (1)
  1. NEUTROSPEC [Suspect]
     Indication: SCAN
     Dosage: 20.5 MCI, ONE TIME
     Dates: start: 20050128, end: 20050128

REACTIONS (5)
  - DYSPNOEA [None]
  - FEELING HOT [None]
  - HYPERHIDROSIS [None]
  - HYPOTENSION [None]
  - THROAT TIGHTNESS [None]
